FAERS Safety Report 12822458 (Version 1)
Quarter: 2016Q4

REPORT INFORMATION
  Report Type: Spontaneous
  Country: JP (occurrence: JP)
  Receive Date: 20161007
  Receipt Date: 20161007
  Transmission Date: 20170207
  Serious: Yes (Other)
  Sender: FDA-Public Use
  Company Number: JP-SUN PHARMACEUTICAL INDUSTRIES LTD-2016RR-123585

PATIENT
  Age: 71 Year
  Sex: Male

DRUGS (3)
  1. IFOSFAMIDE. [Suspect]
     Active Substance: IFOSFAMIDE
     Indication: SARCOMA
     Dosage: 2.5 MG/M^2 ON DAYS 1-4, EVERY 3 WEEKS
     Route: 065
  2. DOXORUBICIN [Suspect]
     Active Substance: DOXORUBICIN
     Indication: SARCOMA
     Dosage: 25MG/M2 ON DAYS 1-3, EVERY 3 WEEKS
     Route: 065
  3. PAZOPANIB [Suspect]
     Active Substance: PAZOPANIB
     Indication: SARCOMA
     Dosage: 800 MG, DAILY
     Route: 065

REACTIONS (4)
  - Neutropenia [Unknown]
  - Treatment noncompliance [Unknown]
  - Pulmonary necrosis [Unknown]
  - Fatigue [Unknown]
